FAERS Safety Report 18411081 (Version 1)
Quarter: 2020Q4

REPORT INFORMATION
  Report Type: Spontaneous
  Country: US (occurrence: US)
  Receive Date: 20201021
  Receipt Date: 20201021
  Transmission Date: 20210114
  Serious: No
  Sender: FDA-Public Use
  Company Number: US-GILEAD-2020-0500236

PATIENT
  Sex: Male

DRUGS (3)
  1. HARVONI [Suspect]
     Active Substance: LEDIPASVIR\SOFOSBUVIR
     Indication: HEPATITIS C
     Dosage: 1 DOSAGE FORM, QD, TABLET 45/200 MG
     Route: 048
     Dates: start: 20200913
  2. ADDERALL [Concomitant]
     Active Substance: AMPHETAMINE ASPARTATE\AMPHETAMINE SULFATE\DEXTROAMPHETAMINE SACCHARATE\DEXTROAMPHETAMINE SULFATE
  3. TYLENOL [Concomitant]
     Active Substance: ACETAMINOPHEN

REACTIONS (2)
  - Fatigue [Unknown]
  - Appetite disorder [Unknown]
